FAERS Safety Report 4344301-4 (Version None)
Quarter: 2004Q2

REPORT INFORMATION
  Report Type: 
  Country: None (occurrence: None)
  Receive Date: 20040419
  Receipt Date: 20040405
  Transmission Date: 20050107
  Serious: Yes (Death, Hospitalization)
  Sender: FDA-Public Use
  Company Number: 6008283

PATIENT
  Age: 52 Year
  Sex: Male

DRUGS (6)
  1. METFORMIN HCL [Suspect]
     Dosage: 1000 MG ORAL  (STOPPED WITHIN 1 WEEK)
     Route: 048
  2. DIDANOSINE (DIDANOSINE) [Suspect]
  3. STAVUDINE (STAVUDINE) [Suspect]
     Indication: HIV INFECTION
  4. TENOFOVIR (TENOFOVIR) [Suspect]
     Indication: HIV INFECTION
  5. SULFAMETHOXAZOLE + TRIMETHOPRIM [Suspect]
     Indication: HIV INFECTION
  6. GANCICLOVIR SODIUM [Suspect]
     Indication: HIV INFECTION
     Dosage: ORAL
     Route: 048

REACTIONS (17)
  - ABDOMINAL PAIN [None]
  - ACIDOSIS [None]
  - BLOOD POTASSIUM INCREASED [None]
  - CARDIAC FAILURE [None]
  - ELECTROMECHANICAL DISSOCIATION [None]
  - GENERAL PHYSICAL HEALTH DETERIORATION [None]
  - HEPATIC STEATOSIS [None]
  - HEPATOMEGALY [None]
  - JAUNDICE [None]
  - LACTIC ACIDOSIS [None]
  - LETHARGY [None]
  - MITOCHONDRIAL TOXICITY [None]
  - NAUSEA [None]
  - POLYDIPSIA [None]
  - POLYURIA [None]
  - TACHYCARDIA [None]
  - VOMITING [None]
